FAERS Safety Report 7689757-4 (Version None)
Quarter: 2011Q3

REPORT INFORMATION
  Report Type: 
  Country: None (occurrence: None)
  Receive Date: 20110817
  Receipt Date: 20110809
  Transmission Date: 20111222
  Serious: Yes (Death)
  Sender: FDA-Public Use
  Company Number: US-RB-025022-11

PATIENT
  Sex: Male
  Weight: 97 kg

DRUGS (11)
  1. SUBOXONE [Suspect]
     Indication: DRUG DEPENDENCE
     Dosage: DOSE WAS 2/5 OF AN 8 MG FILM
     Route: 065
     Dates: start: 20110215
  2. FENTANYL-100 [Suspect]
     Indication: PRODUCT USED FOR UNKNOWN INDICATION
     Route: 062
     Dates: start: 20100701
  3. HYDROCODONE [Concomitant]
     Indication: PAIN
     Dosage: DOSING INFORMATION UNKNOWN
  4. FENTANYL-100 [Suspect]
     Route: 062
     Dates: start: 20100801
  5. HEROIN [Suspect]
     Indication: PRODUCT USED FOR UNKNOWN INDICATION
     Dosage: DOSING DETAILS UNKNOWN
     Route: 042
  6. FENTANYL-100 [Concomitant]
     Indication: PAIN
     Dosage: DOSING INFORMATION UNKNOWN
  7. SUBOXONE [Suspect]
     Indication: DRUG DEPENDENCE
     Dosage: 8-16MG DAILY
     Route: 060
     Dates: start: 20100422
  8. HYDROCODONE BITARTRATE AND ACETAMINOPHEN [Suspect]
     Indication: PRODUCT USED FOR UNKNOWN INDICATION
     Dosage: DOSE  STRENGTH 7.5/500
     Route: 065
     Dates: start: 20110301
  9. CLONAZEPAM [Suspect]
     Indication: PRODUCT USED FOR UNKNOWN INDICATION
     Dosage: ORDERED 2 MG #60 ON 14-MAR-2011
     Route: 065
     Dates: start: 20110101
  10. CLONAZEPAM [Concomitant]
     Indication: SLEEP DISORDER
  11. SUBOXONE [Suspect]
     Dosage: DOSE RANGE FROM 8-16 MG DAILY
     Route: 065
     Dates: start: 20100910

REACTIONS (8)
  - WOUND [None]
  - TOXICITY TO VARIOUS AGENTS [None]
  - DILATATION VENTRICULAR [None]
  - LIVER DISORDER [None]
  - EXCORIATION [None]
  - HEPATIC FIBROSIS [None]
  - CARDIOMEGALY [None]
  - LACERATION [None]
